FAERS Safety Report 17287985 (Version 1)
Quarter: 2020Q1

REPORT INFORMATION
  Report Type: Report from Study
  Country: US (occurrence: US)
  Receive Date: 20200120
  Receipt Date: 20200120
  Transmission Date: 20200409
  Serious: Yes (Hospitalization)
  Sender: FDA-Public Use
  Company Number: US-ROCHE-2525393

PATIENT
  Sex: Female

DRUGS (15)
  1. ESBRIET [Suspect]
     Active Substance: PIRFENIDONE
     Indication: INTERSTITIAL LUNG DISEASE
     Dosage: WITH MEALS
     Route: 048
  2. GEMFIBROZIL. [Concomitant]
     Active Substance: GEMFIBROZIL
     Route: 048
  3. ESBRIET [Suspect]
     Active Substance: PIRFENIDONE
     Indication: IDIOPATHIC PULMONARY FIBROSIS
  4. LOSARTAN. [Concomitant]
     Active Substance: LOSARTAN
     Route: 065
  5. BENZONATATE. [Concomitant]
     Active Substance: BENZONATATE
     Route: 048
  6. BUPROPION HYDROCHLORIDE XL [Concomitant]
     Active Substance: BUPROPION HYDROCHLORIDE
     Route: 048
  7. MINOCYCLINE [Concomitant]
     Active Substance: MINOCYCLINE HYDROCHLORIDE
     Route: 048
  8. PANTOPRAZOLE [Concomitant]
     Active Substance: PANTOPRAZOLE
     Route: 048
  9. JANUVIA [Concomitant]
     Active Substance: SITAGLIPTIN PHOSPHATE
     Route: 048
  10. HYDROCHLOROTHIAZIDE. [Concomitant]
     Active Substance: HYDROCHLOROTHIAZIDE
     Route: 048
  11. ESCITALOPRAM [Concomitant]
     Active Substance: ESCITALOPRAM OXALATE
     Route: 048
  12. ROPINIROLE. [Concomitant]
     Active Substance: ROPINIROLE
     Route: 048
  13. GLIPIZIDE. [Concomitant]
     Active Substance: GLIPIZIDE
     Route: 048
  14. PRAVASTATIN. [Concomitant]
     Active Substance: PRAVASTATIN
     Route: 048
  15. LORAZEPAM. [Concomitant]
     Active Substance: LORAZEPAM
     Route: 048

REACTIONS (1)
  - Pneumonia [Unknown]
